FAERS Safety Report 6961841-X (Version None)
Quarter: 2010Q3

REPORT INFORMATION
  Report Type: 
  Country: None (occurrence: None)
  Receive Date: 20100902
  Receipt Date: 20100827
  Transmission Date: 20110219
  Serious: Yes (Hospitalization)
  Sender: FDA-Public Use
  Company Number: US-BIOGENIDEC-2010BI026325

PATIENT
  Age: 30 Year
  Sex: Female
  Weight: 83 kg

DRUGS (30)
  1. TYSABRI [Suspect]
     Indication: CROHN'S DISEASE
     Route: 042
     Dates: start: 20090731
  2. TRIAMTERENE [Concomitant]
     Indication: HYPERTENSION
  3. HYDROCHLOROTHIAZIDE [Concomitant]
     Indication: HYPERTENSION
  4. ESOMEPRAZOLE MAGNESIUM [Concomitant]
     Indication: GASTROOESOPHAGEAL REFLUX DISEASE
     Route: 048
  5. DIAZEPAM [Concomitant]
     Indication: ANXIETY
     Route: 048
  6. CREON [Concomitant]
     Indication: CHOLANGITIS SCLEROSING
     Route: 048
  7. HYOSCYAMINE [Concomitant]
     Indication: ABDOMINAL PAIN
     Route: 060
  8. URSODIOL [Concomitant]
     Indication: CHOLANGITIS SCLEROSING
     Route: 048
  9. DIPHENHYDRAMINE HCL [Concomitant]
     Route: 048
  10. RANITIDINE [Concomitant]
     Indication: GASTROOESOPHAGEAL REFLUX DISEASE
     Route: 048
  11. MEDROL [Concomitant]
     Indication: RASH
     Dates: start: 20100611
  12. LEVOTHYROXINE [Concomitant]
     Indication: HYPOTHYROIDISM
     Route: 048
  13. CITALOPRAM HYDROBROMIDE [Concomitant]
     Indication: ANXIETY
     Route: 048
  14. CITALOPRAM HYDROBROMIDE [Concomitant]
     Indication: DEPRESSION
     Route: 048
  15. ALPRAZOLAM [Concomitant]
     Indication: SLEEP DISORDER
     Route: 048
  16. TOPIRAMATE [Concomitant]
     Route: 048
  17. DURADRIN [Concomitant]
     Route: 048
  18. LOESTRIN 1.5/30 [Concomitant]
     Route: 048
  19. ESTROGENS [Concomitant]
     Route: 048
  20. METHYLTESTOSTERONE [Concomitant]
     Route: 048
  21. LOPERAMIDE [Concomitant]
     Route: 048
  22. LOMOTIL [Concomitant]
     Indication: DIARRHOEA
     Route: 048
  23. IRON SUCROSE [Concomitant]
     Route: 042
  24. VITAMIN B-12 [Concomitant]
     Route: 060
  25. VITAMIN B-12 [Concomitant]
     Route: 058
  26. CALCIUM CARBONATE [Concomitant]
     Route: 048
  27. ONDANSETRON [Concomitant]
     Indication: NAUSEA
     Route: 048
  28. OXYCODONE [Concomitant]
     Indication: PAIN
     Route: 048
  29. PHENERGAN [Concomitant]
     Indication: NAUSEA
     Route: 048
  30. GLUCOSAMINE SULFATE [Concomitant]

REACTIONS (2)
  - ABDOMINAL HERNIA [None]
  - HYPOKALAEMIA [None]
